FAERS Safety Report 16723976 (Version 2)
Quarter: 2019Q3

REPORT INFORMATION
  Report Type: Report from Study
  Country: ES (occurrence: ES)
  Receive Date: 20190821
  Receipt Date: 20190830
  Transmission Date: 20191005
  Serious: Yes (Other)
  Sender: FDA-Public Use
  Company Number: PHHY2019ES185857

PATIENT
  Age: 31 Year
  Sex: Male

DRUGS (4)
  1. CERTICAN [Suspect]
     Active Substance: EVEROLIMUS
     Indication: IMMUNOSUPPRESSION
  2. PREDNISOLONE. [Concomitant]
     Active Substance: PREDNISOLONE
     Indication: IMMUNOSUPPRESSION
     Route: 065
  3. CERTICAN [Suspect]
     Active Substance: EVEROLIMUS
     Indication: IGA NEPHROPATHY
  4. CERTICAN [Suspect]
     Active Substance: EVEROLIMUS
     Indication: EPIDERMOLYSIS BULLOSA
     Dosage: UNK
     Route: 048

REACTIONS (6)
  - Taste disorder [Recovered/Resolved]
  - Skin disorder [Not Recovered/Not Resolved]
  - Impaired healing [Not Recovered/Not Resolved]
  - Dysphagia [Recovered/Resolved]
  - Neoplasm malignant [Unknown]
  - Product use in unapproved indication [Unknown]
